FAERS Safety Report 5827242-2 (Version None)
Quarter: 2008Q3

REPORT INFORMATION
  Report Type: 
  Country: None (occurrence: None)
  Receive Date: 20080725
  Receipt Date: 20080714
  Transmission Date: 20090109
  Serious: Yes (Hospitalization)
  Sender: FDA-Public Use
  Company Number: 14261499

PATIENT
  Age: 58 Year
  Sex: Male

DRUGS (9)
  1. REVIA [Suspect]
     Indication: ALCOHOLISM
     Dosage: ORAL
     Route: 048
     Dates: start: 20080401, end: 20080428
  2. OMEPRAZOLE [Concomitant]
  3. SERTRALINE (SERTRALINE HCL) [Concomitant]
  4. ATARAX [Concomitant]
  5. PROPAVAN (PROPIOMAZINE MALEATE) [Concomitant]
  6. ANTABUSE [Concomitant]
  7. SPIRONOLACTONE [Concomitant]
  8. ATENOLOL [Concomitant]
  9. ZOPICLONE (ZOPICLONE) [Concomitant]

REACTIONS (4)
  - ANOREXIA [None]
  - DIARRHOEA [None]
  - GASTROINTESTINAL INFLAMMATION [None]
  - VOMITING [None]
